FAERS Safety Report 22290989 (Version 1)
Quarter: 2023Q2

REPORT INFORMATION
  Report Type: Report from Study
  Country: US (occurrence: US)
  Receive Date: 20230506
  Receipt Date: 20230506
  Transmission Date: 20230722
  Serious: Yes (Hospitalization)
  Sender: FDA-Public Use
  Company Number: US-ABBVIE-4753734

PATIENT
  Age: 61 Year
  Sex: Female

DRUGS (1)
  1. HUMIRA [Suspect]
     Active Substance: ADALIMUMAB
     Indication: Crohn^s disease
     Route: 058
     Dates: start: 20121101

REACTIONS (8)
  - Loss of consciousness [Unknown]
  - Meniscus injury [Unknown]
  - Hip fracture [Unknown]
  - Urinary tract infection [Unknown]
  - Crohn^s disease [Unknown]
  - Pneumonia [Unknown]
  - Fall [Unknown]
  - Muscle injury [Unknown]

NARRATIVE: CASE EVENT DATE: 20230415
